FAERS Safety Report 15484140 (Version 1)
Quarter: 2018Q4

REPORT INFORMATION
  Report Type: Spontaneous
  Country: US (occurrence: US)
  Receive Date: 20181010
  Receipt Date: 20181010
  Transmission Date: 20190205
  Serious: Yes (Hospitalization)
  Sender: FDA-Public Use
  Company Number: US-MYLANLABS-2018M1075007

PATIENT
  Age: 16 Year
  Sex: Male

DRUGS (1)
  1. IBUPROFEN. [Suspect]
     Active Substance: IBUPROFEN
     Indication: HUMERUS FRACTURE
     Route: 065

REACTIONS (6)
  - Appendicitis [Recovering/Resolving]
  - Leukocytosis [Unknown]
  - Peritonitis [Unknown]
  - Duodenal ulcer perforation [Recovered/Resolved]
  - Colitis [Unknown]
  - Chemical peritonitis [Unknown]
